FAERS Safety Report 4291426-8 (Version None)
Quarter: 2004Q1

REPORT INFORMATION
  Report Type: 
  Country: None (occurrence: None)
  Receive Date: 20040211
  Receipt Date: 20040129
  Transmission Date: 20041129
  Serious: Yes (Other)
  Sender: FDA-Public Use
  Company Number: PHNR2004AU00578

PATIENT
  Age: 39 Year
  Sex: Female

DRUGS (5)
  1. VOLTAREN [Suspect]
     Indication: PAIN
     Dosage: 200 MG, PRN
     Route: 054
     Dates: start: 20021114
  2. TRAMAL - SLOW RELEASE [Concomitant]
  3. DEXTROPROPOXYPHENE/ PARACETAMOL [Concomitant]
  4. ALPRAZOLAM [Concomitant]
  5. PAROXETINE [Concomitant]

REACTIONS (2)
  - DRUG INTERACTION [None]
  - GASTRIC ULCER [None]
